FAERS Safety Report 15151258 (Version 1)
Quarter: 2018Q3

REPORT INFORMATION
  Report Type: Report from Study
  Country: BG (occurrence: BG)
  Receive Date: 20180716
  Receipt Date: 20180716
  Transmission Date: 20181010
  Serious: Yes (Death)
  Sender: FDA-Public Use
  Company Number: BG-BAYER-2018-122486

PATIENT
  Age: 47 Year
  Sex: Male

DRUGS (1)
  1. NEXAVAR [Suspect]
     Active Substance: SORAFENIB
     Indication: THYROID DISORDER
     Dosage: 200 MG, BID
     Route: 048
     Dates: start: 20151110, end: 201805

REACTIONS (6)
  - Glottis carcinoma [Fatal]
  - Metastases to central nervous system [Fatal]
  - Thyroid disorder [Fatal]
  - Myocardial ischaemia [Fatal]
  - Cardiac failure [Fatal]
  - Metastases to lung [Fatal]
